FAERS Safety Report 9381685 (Version 1)
Quarter: 2013Q3

REPORT INFORMATION
  Report Type: Spontaneous
  Country: US (occurrence: US)
  Receive Date: 20130703
  Receipt Date: 20130703
  Transmission Date: 20140515
  Serious: Yes (Hospitalization, Other)
  Sender: FDA-Public Use
  Company Number: US-PFIZER INC-2013192965

PATIENT
  Age: 82 Year
  Sex: Male

DRUGS (2)
  1. INLYTA [Suspect]
     Dosage: 5 MG, 2X/DAY
     Route: 048
     Dates: start: 201301
  2. LISINOPRIL [Suspect]
     Indication: BLOOD PRESSURE INCREASED
     Dosage: 10 MG, AS NEEDED

REACTIONS (8)
  - Shock [Unknown]
  - Dehydration [Unknown]
  - Hypotension [Unknown]
  - Rib fracture [Unknown]
  - Hypertension [Unknown]
  - Fall [Unknown]
  - Dyspnoea [Unknown]
  - Dizziness [Unknown]
